FAERS Safety Report 18394883 (Version 1)
Quarter: 2020Q4

REPORT INFORMATION
  Report Type: Spontaneous
  Country: GB (occurrence: GB)
  Receive Date: 20201017
  Receipt Date: 20201017
  Transmission Date: 20210114
  Serious: Yes (Life-Threatening)
  Sender: FDA-Public Use
  Company Number: NVSC2020GB278167

PATIENT
  Age: 65 Year
  Sex: Male
  Weight: 89.4 kg

DRUGS (3)
  1. MEKINIST [Suspect]
     Active Substance: TRAMETINIB DIMETHYL SULFOXIDE
     Indication: MALIGNANT MELANOMA STAGE IV
     Dosage: 2 MG, QD
     Route: 048
     Dates: start: 20200905, end: 20200918
  2. TAFINLAR [Suspect]
     Active Substance: DABRAFENIB MESYLATE
     Indication: MALIGNANT MELANOMA STAGE IV
     Dosage: 300 MG, QD
     Route: 048
     Dates: start: 20200905, end: 20200916
  3. NIVOLUMAB [Concomitant]
     Active Substance: NIVOLUMAB
     Indication: PRODUCT USED FOR UNKNOWN INDICATION
     Dosage: UNK
     Route: 042
     Dates: start: 20200724

REACTIONS (7)
  - Acute kidney injury [Unknown]
  - Chills [Unknown]
  - Pyrexia [Recovered/Resolved]
  - Dry mouth [Unknown]
  - Dermatitis exfoliative generalised [Recovering/Resolving]
  - Rash maculo-papular [Recovering/Resolving]
  - Oral pain [Unknown]

NARRATIVE: CASE EVENT DATE: 20200915
